FAERS Safety Report 4534087-2 (Version None)
Quarter: 2004Q4

REPORT INFORMATION
  Report Type: 
  Country: None (occurrence: None)
  Receive Date: 20041222
  Receipt Date: 20041210
  Transmission Date: 20050328
  Serious: Yes (Death)
  Sender: FDA-Public Use
  Company Number: US-JNJFOC-20041105360

PATIENT
  Sex: Male

DRUGS (15)
  1. INFLIXIMAB [Suspect]
     Indication: RHEUMATOID ARTHRITIS
     Route: 042
  2. ENBREL [Concomitant]
     Route: 058
  3. METHOTREXATE [Concomitant]
     Route: 049
  4. PREDNISONE [Concomitant]
  5. FOLIC ACID [Concomitant]
     Route: 049
  6. ATENOLOL [Concomitant]
     Route: 049
  7. ZOCOR [Concomitant]
     Route: 049
  8. DARVOCET [Concomitant]
     Route: 049
  9. DARVOCET [Concomitant]
     Dosage: 100-650 MG TABLETS, 1 PO Q 4-6 HOURS PRN PAIN
     Route: 049
  10. PLAVIX [Concomitant]
     Dosage: AT HS
     Route: 049
  11. B-50 [Concomitant]
     Route: 049
  12. CALCIUM [Concomitant]
     Route: 049
  13. MICRO-K [Concomitant]
     Route: 049
  14. HYDROCHLOROTHIAZIDE [Concomitant]
     Route: 049
  15. MEGA MULTIPLE/CHELATED MINERAL TAB [Concomitant]

REACTIONS (1)
  - METASTATIC NEOPLASM [None]
